FAERS Safety Report 8769404 (Version 5)
Quarter: 2012Q4

REPORT INFORMATION
  Report Type: 
  Country: FR (occurrence: FR)
  Receive Date: 20120904
  Receipt Date: 20121123
  Transmission Date: 20130627
  Serious: Yes (Death, Hospitalization, Other)
  Sender: FDA-Public Use
  Company Number: FR-PFIZER INC-2012212285

PATIENT
  Age: 28 Year
  Sex: Female
  Weight: 37.9 kg

DRUGS (22)
  1. PRODILANTIN [Suspect]
     Indication: GRAND MAL EPILEPSY
     Dosage: 855 mg, single, loading dose
     Dates: start: 20120820, end: 20120820
  2. PRODILANTIN [Suspect]
     Indication: CONVULSIONS
     Dosage: 160 mg/h
     Dates: start: 20120822, end: 20120822
  3. PRODILANTIN [Suspect]
     Dosage: 160 mg/h
     Route: 042
     Dates: start: 20120823, end: 20120823
  4. PRODILANTIN [Suspect]
     Dosage: 160 mg/h
     Route: 042
     Dates: start: 20120824, end: 20120825
  5. RIVOTRIL [Concomitant]
     Dosage: UNK
     Dates: end: 20120821
  6. TRILEPTAL [Concomitant]
     Dosage: 1 DF, 2x/day
     Dates: start: 20120822, end: 20120825
  7. LAMOTRIGINE [Concomitant]
     Dosage: UNK
     Dates: start: 20120822, end: 20120822
  8. LAMOTRIGINE [Concomitant]
     Dosage: UNK
     Dates: start: 20120823, end: 20120825
  9. PENTOTHAL [Concomitant]
     Indication: CONVULSIONS
     Dosage: UNK
     Dates: start: 20120823
  10. CELOCURIN [Concomitant]
  11. INSULIN [Concomitant]
     Dosage: 24 IU, daily
     Dates: start: 20120823, end: 20120823
  12. HYPNOVEL [Concomitant]
  13. SUFENTA [Concomitant]
     Dosage: 300 ?g/daily
     Dates: start: 20120823, end: 20120823
  14. GARDENALE [Concomitant]
     Dosage: 100 mg daily
     Dates: start: 20120822, end: 20120825
  15. NEURONTIN [Concomitant]
     Dosage: 1 DF, 3x/day
     Dates: start: 20120822, end: 20120825
  16. URBANYL [Concomitant]
     Dosage: 10 mg, 1x/day
     Dates: start: 20120823, end: 20120825
  17. INEXIUM [Concomitant]
     Dosage: 40 mg, 1x/day
     Dates: start: 20120824, end: 20120825
  18. VALIUM [Concomitant]
     Dosage: 10 mg daily
     Dates: start: 20120822, end: 20120825
  19. PERFALGAN [Concomitant]
     Dosage: UNK
     Dates: start: 20120822, end: 20120823
  20. ECONAZOLE [Concomitant]
     Dosage: UNK
     Dates: start: 20120822
  21. LAMICTAL [Concomitant]
     Dosage: 1 DF, 1x/day
  22. XEROQUEL [Concomitant]
     Dosage: UNK
     Dates: start: 20120813

REACTIONS (9)
  - Overdose [Fatal]
  - Septic shock [Fatal]
  - Cardiac failure [Fatal]
  - Renal failure [Fatal]
  - Hepatic failure [Fatal]
  - Lung disorder [Fatal]
  - Nosocomial infection [Fatal]
  - Drug ineffective [Unknown]
  - Convulsion [Unknown]
